FAERS Safety Report 9453140 (Version 4)
Quarter: 2014Q1

REPORT INFORMATION
  Report Type: Report from Study
  Country: IT (occurrence: IT)
  Receive Date: 20130812
  Receipt Date: 20140212
  Transmission Date: 20141002
  Serious: Yes (Death, Hospitalization)
  Sender: FDA-Public Use
  Company Number: IT-INCYTE CORPORATION-2013IN001780

PATIENT
  Age: 62 Year
  Sex: Male

DRUGS (5)
  1. INC424 [Suspect]
     Indication: MYELOFIBROSIS
     Dosage: 15 MG, BID
     Route: 048
     Dates: start: 20130304, end: 20130729
  2. PANTOPRAZOLE [Concomitant]
     Dosage: UNK
     Dates: end: 20130729
  3. NORMOTHEN [Concomitant]
     Dosage: UNK
     Dates: end: 20130729
  4. URBASON/GFR                            /00049601/ [Concomitant]
     Dosage: UNK
     Dates: end: 20130729
  5. ASA [Concomitant]
     Dosage: UNK
     Dates: end: 20130729

REACTIONS (1)
  - Infection [Fatal]
